FAERS Safety Report 20403682 (Version 2)
Quarter: 2022Q1

REPORT INFORMATION
  Report Type: Spontaneous
  Country: TR (occurrence: TR)
  Receive Date: 20220131
  Receipt Date: 20220228
  Transmission Date: 20220423
  Serious: Yes (Hospitalization)
  Sender: FDA-Public Use
  Company Number: TR-NOVOPROD-884865

PATIENT
  Sex: Female
  Weight: 3.28 kg

DRUGS (8)
  1. LEVEMIR [Suspect]
     Active Substance: INSULIN DETEMIR
     Indication: Gestational diabetes
     Dosage: 8 IU, QD
     Route: 064
     Dates: start: 20211006, end: 20211206
  2. NOVORAPID [Suspect]
     Active Substance: INSULIN ASPART
     Indication: Gestational diabetes
     Dosage: 10 IU, QID
     Route: 064
     Dates: start: 20211006, end: 20211206
  3. OKSAPAR [Concomitant]
     Indication: Product used for unknown indication
     Dosage: 0.4 MG, QD (ONCE A DAY FOR 7 MONTHS)
     Route: 064
     Dates: end: 20211206
  4. ASPIRIN [Concomitant]
     Active Substance: ASPIRIN
     Indication: Product used for unknown indication
     Dosage: 1000 MG, QD (ONCE A DAY FOR 7 MONTHS)
     Route: 064
     Dates: end: 20211206
  5. GYNOTARDYFERON [Concomitant]
     Indication: Product used for unknown indication
     Dosage: ONCE A DAY FOR 3 MONTHS
     Route: 064
     Dates: end: 20211206
  6. MAGNORM [Concomitant]
     Indication: Product used for unknown indication
     Dosage: ONCE IN EVERY 2 DAYS FOR 1 MONTH
     Route: 064
     Dates: end: 20211206
  7. CALCIMAX [CALCIUM CITRATE] [Concomitant]
     Indication: Product used for unknown indication
     Dosage: ONCE IN EVERY 2 DAYS FOR 1 MONTH
     Route: 064
     Dates: end: 20211206
  8. PROGESTERONE [Concomitant]
     Active Substance: PROGESTERONE
     Indication: Product used for unknown indication
     Dosage: 200 MG, QD (ONCE A DAY FOR 7 MONTHS)
     Route: 064
     Dates: end: 20211206

REACTIONS (2)
  - Neonatal hypocalcaemia [Recovered/Resolved]
  - Foetal exposure during pregnancy [Recovered/Resolved]

NARRATIVE: CASE EVENT DATE: 20211006
